FAERS Safety Report 8492834-1 (Version None)
Quarter: 2012Q3

REPORT INFORMATION
  Report Type: 
  Country: None (occurrence: None)
  Receive Date: 20120706
  Receipt Date: 20120625
  Transmission Date: 20120928
  Serious: Yes (Other)
  Sender: FDA-Public Use
  Company Number: ES-ELI_LILLY_AND_COMPANY-ES201206008079

PATIENT
  Sex: Female

DRUGS (1)
  1. FORTEO [Suspect]
     Dosage: UNK
     Dates: start: 20120506

REACTIONS (4)
  - INCORRECT DRUG ADMINISTRATION DURATION [None]
  - FEMUR FRACTURE [None]
  - ARTHRALGIA [None]
  - FRACTURE DELAYED UNION [None]
